FAERS Safety Report 8234774-9 (Version None)
Quarter: 2012Q1

REPORT INFORMATION
  Report Type: 
  Country: None (occurrence: None)
  Receive Date: 20120322
  Receipt Date: 20120308
  Transmission Date: 20120608
  Serious: No
  Sender: FDA-Public Use
  Company Number: TUK2011A00223

PATIENT
  Age: 58 Year
  Sex: Male

DRUGS (8)
  1. METFORMIN HCL [Concomitant]
  2. FENOFIBRATE [Concomitant]
  3. ACTOS [Suspect]
     Indication: DIABETES MELLITUS
     Dosage: (15 MG)
     Route: 048
     Dates: start: 20090101
  4. GLICLAZIDE (GLICLAZIDE) [Concomitant]
  5. ASPIRIN [Concomitant]
  6. ROSUVASTATIN [Concomitant]
  7. OMACOR (EICOSAPENTAENOIC ACID, DOCOSAHEXONOIC ACID) [Concomitant]
  8. LISINOPRIL [Concomitant]

REACTIONS (2)
  - NORMOCHROMIC NORMOCYTIC ANAEMIA [None]
  - ANAEMIA [None]
